FAERS Safety Report 19047857 (Version 4)
Quarter: 2021Q2

REPORT INFORMATION
  Report Type: Spontaneous
  Country: ES (occurrence: ES)
  Receive Date: 20210324
  Receipt Date: 20210624
  Transmission Date: 20210717
  Serious: Yes (Hospitalization)
  Sender: FDA-Public Use
  Company Number: ES-JNJFOC-20210335456

PATIENT
  Age: 60 Year
  Sex: Male

DRUGS (10)
  1. DEMILOS [Concomitant]
     Active Substance: CALCIUM CARBONATE\CHOLECALCIFEROL
  2. CIPROFLOXACIN;METRONIDAZOLE [Concomitant]
     Indication: ANAL FISTULA
     Dosage: CIPROFLOXACIN 500 AND METRONIDAZOLE 500
     Route: 048
     Dates: start: 20190924, end: 20191024
  3. FERBISOL [Concomitant]
  4. ALDOCUMAR [Concomitant]
     Active Substance: WARFARIN SODIUM
  5. PROPRANOLOL [Concomitant]
     Active Substance: PROPRANOLOL HYDROCHLORIDE
     Route: 048
  6. PREDNISONE. [Concomitant]
     Active Substance: PREDNISONE
     Indication: CROHN^S DISEASE
     Route: 048
     Dates: start: 20190924, end: 20191124
  7. CALCIFEDIOL [Concomitant]
     Active Substance: CALCIFEDIOL
  8. PANTOPRAZOLE [Concomitant]
     Active Substance: PANTOPRAZOLE
  9. STELARA [Suspect]
     Active Substance: USTEKINUMAB
     Indication: CROHN^S DISEASE
     Dosage: 260 MG IV INDUCTION AND 90 MG SC MAINTENANCE
     Route: 058
     Dates: start: 20191011, end: 202003
  10. WARFARINE [Concomitant]
     Active Substance: WARFARIN
     Indication: DEEP VEIN THROMBOSIS
     Route: 048
     Dates: start: 2017, end: 20200514

REACTIONS (1)
  - Acute kidney injury [Recovering/Resolving]

NARRATIVE: CASE EVENT DATE: 20200514
